FAERS Safety Report 14987828 (Version 1)
Quarter: 2018Q2

REPORT INFORMATION
  Report Type: Report from Study
  Country: AU (occurrence: AU)
  Receive Date: 20180608
  Receipt Date: 20180608
  Transmission Date: 20180711
  Serious: Yes (Other)
  Sender: FDA-Public Use
  Company Number: AU-JNJFOC-20180538530

PATIENT

DRUGS (3)
  1. HALOPERIDOL. [Suspect]
     Active Substance: HALOPERIDOL
     Indication: NAUSEA
     Route: 050
  2. METOCLOPRAMIDE. [Concomitant]
     Active Substance: METOCLOPRAMIDE
     Indication: NAUSEA
     Route: 065
  3. HALOPERIDOL. [Suspect]
     Active Substance: HALOPERIDOL
     Indication: NAUSEA
     Route: 048

REACTIONS (12)
  - Abdominal discomfort [Unknown]
  - Fatigue [Unknown]
  - Hypertension [Unknown]
  - Anticholinergic syndrome [Unknown]
  - Incorrect dose administered [Unknown]
  - Decreased appetite [Unknown]
  - Restlessness [Unknown]
  - Somnolence [Unknown]
  - Dizziness [Unknown]
  - Hypotension [Unknown]
  - Off label use [Unknown]
  - Product use issue [Unknown]
